FAERS Safety Report 7650686-3 (Version None)
Quarter: 2011Q3

REPORT INFORMATION
  Report Type: 
  Country: None (occurrence: None)
  Receive Date: 20110802
  Receipt Date: 20110728
  Transmission Date: 20111222
  Serious: Yes (Life-Threatening, Hospitalization, Disabling, Other)
  Sender: FDA-Public Use
  Company Number: JP-ABBOTT-11P-087-0713232-00

PATIENT
  Sex: Male
  Weight: 76 kg

DRUGS (9)
  1. GASMOTIN [Concomitant]
     Indication: PROPHYLAXIS
     Route: 048
     Dates: start: 20100909, end: 20101214
  2. NAUZELIN [Concomitant]
     Indication: PROPHYLAXIS
     Route: 048
     Dates: start: 20090512, end: 20101214
  3. MUCODYNE [Concomitant]
     Indication: ATYPICAL MYCOBACTERIAL INFECTION
     Route: 048
     Dates: start: 20090512, end: 20101214
  4. PYDOXAL [Concomitant]
     Indication: PROPHYLAXIS
     Route: 048
     Dates: start: 20090512, end: 20101214
  5. CLARITHROMYCIN [Suspect]
     Indication: ATYPICAL MYCOBACTERIAL INFECTION
     Route: 048
     Dates: start: 20090512, end: 20101215
  6. APLACE [Concomitant]
     Indication: PROPHYLAXIS
     Route: 048
     Dates: start: 20090512, end: 20101214
  7. RIFAMPICIN [Suspect]
     Indication: ATYPICAL MYCOBACTERIAL INFECTION
     Route: 048
     Dates: start: 20090512, end: 20101214
  8. EBUTOL [Concomitant]
     Indication: ATYPICAL MYCOBACTERIAL INFECTION
     Route: 048
     Dates: start: 20090512, end: 20101124
  9. MUCOSOLVAN [Concomitant]
     Indication: ATYPICAL MYCOBACTERIAL INFECTION
     Route: 048
     Dates: start: 20090512, end: 20101214

REACTIONS (5)
  - NEPHROTIC SYNDROME [None]
  - FOCAL SEGMENTAL GLOMERULOSCLEROSIS [None]
  - GLOMERULONEPHRITIS MEMBRANOUS [None]
  - NEPHROPATHY [None]
  - HYPOALBUMINAEMIA [None]
